FAERS Safety Report 8195371-7 (Version None)
Quarter: 2012Q1

REPORT INFORMATION
  Report Type: 
  Country: None (occurrence: None)
  Receive Date: 20120308
  Receipt Date: 20120306
  Transmission Date: 20120608
  Serious: Yes (Death)
  Sender: FDA-Public Use
  Company Number: US-GLAXOSMITHKLINE-A0969027A

PATIENT
  Age: 24 Year
  Sex: Female
  Weight: 63.6 kg

DRUGS (6)
  1. ADVAIR DISKUS 100/50 [Suspect]
     Indication: ASTHMA
     Dosage: 1PUFF TWICE PER DAY
     Route: 055
     Dates: start: 20100829, end: 20100927
  2. VERAPAMIL [Concomitant]
     Dates: end: 20100927
  3. ALBUTEROL [Concomitant]
  4. NEXIUM [Concomitant]
  5. BACTRIM DS [Concomitant]
  6. MEDROL [Concomitant]

REACTIONS (2)
  - RESPIRATORY FAILURE [None]
  - CARDIAC ARREST [None]
